FAERS Safety Report 25848252 (Version 1)
Quarter: 2025Q3

REPORT INFORMATION
  Report Type: Spontaneous
  Country: US (occurrence: US)
  Receive Date: 20250925
  Receipt Date: 20250925
  Transmission Date: 20251020
  Serious: Yes (Other)
  Sender: AMGEN
  Company Number: US-AMGEN-USASP2025187403

PATIENT
  Age: 13 Year
  Sex: Male
  Weight: 37 kg

DRUGS (3)
  1. PREDNISONE [Suspect]
     Active Substance: PREDNISONE
     Indication: Colitis ulcerative
     Route: 065
  2. PREDNISONE [Suspect]
     Active Substance: PREDNISONE
     Indication: Immunosuppressant drug therapy
     Route: 065
  3. MESALAMINE [Concomitant]
     Active Substance: MESALAMINE
     Indication: Colitis ulcerative

REACTIONS (7)
  - Dilated cardiomyopathy [Unknown]
  - Left ventricular failure [Unknown]
  - Vascular device infection [Unknown]
  - Intestinal perforation [Unknown]
  - Enterocutaneous fistula [Unknown]
  - Posterior reversible encephalopathy syndrome [Unknown]
  - Abdominal pain [Unknown]
